FAERS Safety Report 4339013-7 (Version None)
Quarter: 2004Q2

REPORT INFORMATION
  Report Type: 
  Country: None (occurrence: None)
  Receive Date: 20040409
  Receipt Date: 20040326
  Transmission Date: 20050107
  Serious: Yes (Life-Threatening)
  Sender: FDA-Public Use
  Company Number: 200403596

PATIENT
  Age: 22 Year
  Sex: Female

DRUGS (4)
  1. IMODIUM [Suspect]
     Dosage: 20 MG, PO
     Route: 048
     Dates: start: 20010304
  2. MOTILIUM [Suspect]
     Dosage: 200 MG, PO, 1 TIME
     Route: 048
     Dates: start: 20010304
  3. ACETAMINOPHEN [Suspect]
     Dosage: 12 G, PO
     Route: 048
     Dates: start: 20010304
  4. MODULON (TRIMEBUTINE MALEATE) [Suspect]
     Dosage: 2 G, PO
     Route: 048
     Dates: start: 20010304

REACTIONS (2)
  - ANAPHYLACTOID REACTION [None]
  - INTENTIONAL OVERDOSE [None]
